FAERS Safety Report 8298476-5 (Version None)
Quarter: 2012Q2

REPORT INFORMATION
  Report Type: 
  Country: None (occurrence: None)
  Receive Date: 20120419
  Receipt Date: 20111107
  Transmission Date: 20120825
  Serious: No
  Sender: FDA-Public Use
  Company Number: US-ABBOTT-11P-163-0871897-00

PATIENT
  Sex: Female
  Weight: 56.296 kg

DRUGS (2)
  1. LUPRON DEPOT-PED [Suspect]
     Indication: PRECOCIOUS PUBERTY
     Dates: start: 20100729
  2. MULTI-VITAMIN [Concomitant]
     Indication: ROUTINE HEALTH MAINTENANCE

REACTIONS (5)
  - OROPHARYNGEAL PAIN [None]
  - EAR PAIN [None]
  - PARANASAL SINUS HYPERSECRETION [None]
  - PYREXIA [None]
  - NASOPHARYNGITIS [None]
